FAERS Safety Report 14634697 (Version 5)
Quarter: 2018Q2

REPORT INFORMATION
  Report Type: Spontaneous
  Country: US (occurrence: US)
  Receive Date: 20180314
  Receipt Date: 20180507
  Transmission Date: 20180711
  Serious: Yes (Hospitalization, Other)
  Sender: FDA-Public Use
  Company Number: US-PFIZER INC-2018100926

PATIENT
  Age: 89 Year
  Sex: Female

DRUGS (5)
  1. LETROZOLE. [Concomitant]
     Active Substance: LETROZOLE
     Dosage: UNK
  2. IBRANCE [Suspect]
     Active Substance: PALBOCICLIB
     Dosage: 100 MG, UNK
  3. XGEVA [Concomitant]
     Active Substance: DENOSUMAB
     Dosage: UNK, MONTHLY
  4. IBRANCE [Suspect]
     Active Substance: PALBOCICLIB
     Dosage: 75 MG, UNK
  5. IBRANCE [Suspect]
     Active Substance: PALBOCICLIB
     Indication: BREAST CANCER METASTATIC
     Dosage: 125 MG, UNK

REACTIONS (9)
  - White blood cell count decreased [Unknown]
  - Renal disorder [Unknown]
  - Lung disorder [Unknown]
  - Red blood cell count decreased [Unknown]
  - Anaemia [Unknown]
  - Pyrexia [Unknown]
  - Feeling abnormal [Unknown]
  - Pneumonia [Unknown]
  - Renal impairment [Unknown]

NARRATIVE: CASE EVENT DATE: 201712
